FAERS Safety Report 7779704-9 (Version None)
Quarter: 2011Q3

REPORT INFORMATION
  Report Type: 
  Country: None (occurrence: None)
  Receive Date: 20110927
  Receipt Date: 20110921
  Transmission Date: 20111222
  Serious: Yes (Other)
  Sender: FDA-Public Use
  Company Number: BR-PFIZER INC-2011225378

PATIENT
  Age: 66 Year
  Sex: Female

DRUGS (1)
  1. LYRICA [Suspect]
     Indication: PAIN IN EXTREMITY
     Dosage: 75 MG (HALF CAPSULE OF 150MG), UNSPECIFIED FREQUENCY
     Route: 048
     Dates: start: 20110919, end: 20110919

REACTIONS (2)
  - SPEECH DISORDER [None]
  - COMMUNICATION DISORDER [None]
